FAERS Safety Report 16735268 (Version 1)
Quarter: 2019Q3

REPORT INFORMATION
  Report Type: Spontaneous
  Country: US (occurrence: US)
  Receive Date: 20190708
  Receipt Date: 20190708
  Transmission Date: 20191005
  Serious: Yes (Hospitalization)
  Sender: FDA-Public Use
  Company Number: None

PATIENT
  Age: 63 Year
  Sex: Male

DRUGS (13)
  1. SERTRALINE TAB SODIUM CHLOR NEB [Concomitant]
  2. PULMOZYME [Suspect]
     Active Substance: DORNASE ALFA
     Indication: CYSTIC FIBROSIS
     Dosage: ?          OTHER ROUTE:INL?
     Dates: start: 20190518
  3. CETIRIZINE TAB [Concomitant]
  4. BUDESONIDE SUS [Concomitant]
  5. SYMBIORT AER [Concomitant]
  6. FLUTICASONE SPR [Concomitant]
  7. MINOCYCLINE CAP [Concomitant]
  8. TOBRAMYCIN NEB [Concomitant]
     Active Substance: TOBRAMYCIN
  9. CREON CAP [Concomitant]
  10. IPRATROPIUM/SOL ALBUTER [Concomitant]
  11. LEVA [Concomitant]
  12. BUTEROL NEB [Concomitant]
  13. PREDNISONE TAB [Concomitant]
     Active Substance: PREDNISONE

REACTIONS (2)
  - Therapy cessation [None]
  - Product availability issue [None]

NARRATIVE: CASE EVENT DATE: 20190707
